FAERS Safety Report 15801330 (Version 1)
Quarter: 2019Q1

REPORT INFORMATION
  Report Type: Report from Study
  Country: US (occurrence: US)
  Receive Date: 20190109
  Receipt Date: 20190109
  Transmission Date: 20190417
  Serious: Yes (Other)
  Sender: FDA-Public Use
  Company Number: US-ROCHE-2238902

PATIENT

DRUGS (2)
  1. 5-FLUOROURACIL [Suspect]
     Active Substance: FLUOROURACIL
     Indication: RECTAL CANCER
     Route: 065
  2. CAPECITABINE. [Suspect]
     Active Substance: CAPECITABINE
     Indication: RECTAL CANCER
     Route: 065

REACTIONS (17)
  - Neutrophil count decreased [Unknown]
  - Decreased appetite [Unknown]
  - Hyperglycaemia [Unknown]
  - Hypokalaemia [Unknown]
  - Respiratory failure [Unknown]
  - Sepsis [Unknown]
  - Ventricular fibrillation [Unknown]
  - Enterocolitis [Unknown]
  - Diarrhoea [Unknown]
  - Cardiac failure [Unknown]
  - Acidosis [Unknown]
  - Encephalopathy [Unknown]
  - Aspiration [Unknown]
  - Large intestinal obstruction [Unknown]
  - Febrile neutropenia [Unknown]
  - Aspartate aminotransferase increased [Unknown]
  - Embolism [Unknown]
